FAERS Safety Report 15285729 (Version 1)
Quarter: 2018Q3

REPORT INFORMATION
  Report Type: Spontaneous
  Country: US (occurrence: US)
  Receive Date: 20180816
  Receipt Date: 20180816
  Transmission Date: 20181010
  Serious: No
  Sender: FDA-Public Use
  Company Number: US-PERRIGO-17US026138

PATIENT
  Age: 50 Year
  Sex: Female
  Weight: 90.7 kg

DRUGS (3)
  1. ZYRTEC [Concomitant]
     Active Substance: CETIRIZINE HYDROCHLORIDE
     Indication: HYPERSENSITIVITY
     Dosage: UNK
     Route: 048
     Dates: start: 1997
  2. NICOTINE POLACRILEX [Suspect]
     Active Substance: NICOTINE
     Dosage: 2 MG, 8 TO 9 TIMES QD, PRN
     Route: 002
     Dates: start: 20170814, end: 20170818
  3. NICOTINE POLACRILEX [Suspect]
     Active Substance: NICOTINE
     Indication: SMOKING CESSATION THERAPY
     Dosage: 2 MG, 8 TO 9 TIMES QD, PRN
     Route: 002
     Dates: start: 201702, end: 20170813

REACTIONS (2)
  - Skin discolouration [Recovering/Resolving]
  - Oral mucosal eruption [Recovering/Resolving]

NARRATIVE: CASE EVENT DATE: 20170814
